FAERS Safety Report 8180303-8 (Version None)
Quarter: 2012Q1

REPORT INFORMATION
  Report Type: 
  Country: None (occurrence: None)
  Receive Date: 20120215
  Receipt Date: 20120206
  Transmission Date: 20120608
  Serious: Yes (Hospitalization, Other)
  Sender: FDA-Public Use
  Company Number: 2012030752

PATIENT
  Age: 61 Year
  Sex: Female
  Weight: 144.6975 kg

DRUGS (16)
  1. SODIUM CHLORIDE 0.9% [Concomitant]
  2. SINGULAIR [Concomitant]
  3. CARDIZEM [Concomitant]
  4. OXYGEN (OXYGEN) [Concomitant]
  5. IBUPROFEN (ADVIL) [Concomitant]
  6. LASIX [Concomitant]
  7. ADVAIR HFA [Concomitant]
  8. MULTIVITAMIN (ACCOMIN MULTIVITAMIN) [Concomitant]
  9. ZEMAIRA [Suspect]
  10. ZEMAIRA [Suspect]
     Indication: EMPHYSEMA
     Dosage: 60 MG/KG 1/WEEK, 945 MG/VIAL, MAX RATE = 0.08 ML/KG/MIN (11.6 ML /MIN INTRAVENOUS (NOT OTHERWISE SPE
     Route: 042
  11. ZEMAIRA [Suspect]
     Indication: ALPHA-1 ANTI-TRYPSIN DEFICIENCY
     Dosage: 60 MG/KG 1/WEEK, 945 MG/VIAL, MAX RATE = 0.08 ML/KG/MIN (11.6 ML /MIN INTRAVENOUS (NOT OTHERWISE SPE
     Route: 042
  12. VITAMIN D [Concomitant]
  13. IPRATROPIUM ALBUTEROL (SALBUTAMOL W/IPRATROPIUM) [Concomitant]
  14. ZOCOR [Concomitant]
  15. METFORMIN HCL [Concomitant]
  16. PRINZIDE [Concomitant]

REACTIONS (4)
  - CHRONIC OBSTRUCTIVE PULMONARY DISEASE [None]
  - CELLULITIS [None]
  - CONDITION AGGRAVATED [None]
  - PNEUMONIA [None]
